FAERS Safety Report 17884388 (Version 5)
Quarter: 2020Q2

REPORT INFORMATION
  Report Type: Spontaneous
  Country: US (occurrence: US)
  Receive Date: 20200611
  Receipt Date: 20200624
  Transmission Date: 20200714
  Serious: No
  Sender: FDA-Public Use
  Company Number: US-PFIZER INC-2020225238

PATIENT
  Age: 83 Year
  Sex: Female
  Weight: 57.15 kg

DRUGS (1)
  1. IBRANCE [Suspect]
     Active Substance: PALBOCICLIB
     Indication: BREAST CANCER
     Dosage: 100 MG, CYCLIC (21 DAYS ON 7 DAYS OFF)
     Route: 048
     Dates: start: 2016

REACTIONS (8)
  - Chills [Unknown]
  - Poor quality product administered [Unknown]
  - Nail injury [Unknown]
  - Product blister packaging issue [Unknown]
  - Hot flush [Unknown]
  - Aphonia [Unknown]
  - Product taste abnormal [Unknown]
  - Nausea [Unknown]
